FAERS Safety Report 7520449-8 (Version None)
Quarter: 2011Q2

REPORT INFORMATION
  Report Type: 
  Country: None (occurrence: None)
  Receive Date: 20110602
  Receipt Date: 20110516
  Transmission Date: 20111010
  Serious: Yes (Life-Threatening, Hospitalization, Other)
  Sender: FDA-Public Use
  Company Number: US-GENENTECH-277592

PATIENT
  Sex: Female

DRUGS (14)
  1. COMBIVENT [Concomitant]
     Indication: ASTHMA
     Dosage: 2 PUFF, PRN
  2. METOCLOPRAMIDE [Concomitant]
     Indication: NAUSEA
     Dosage: UNK
  3. METOPROLOL TARTRATE [Concomitant]
     Indication: HYPERTENSION
     Dosage: 125 MG, QD
     Route: 048
  4. OMALIZUMAB [Suspect]
     Indication: ASTHMA
     Dosage: 300 MG, Q2W
     Route: 058
     Dates: start: 20080401, end: 20090629
  5. MAGNESIUM SULFATE [Suspect]
     Indication: PRODUCT USED FOR UNKNOWN INDICATION
  6. PROTONIX [Concomitant]
     Indication: GASTROOESOPHAGEAL REFLUX DISEASE
     Dosage: 40 MG, QD
     Route: 048
  7. PRENATAL VITAMINS [Concomitant]
     Indication: VITAMIN SUPPLEMENTATION
     Dosage: 1 TABLET, QD
     Route: 048
  8. OMALIZUMAB [Suspect]
     Dosage: 300 MG, Q2W
     Route: 058
     Dates: start: 20100504
  9. FERROUS SULFATE TAB [Concomitant]
     Indication: VITAMIN SUPPLEMENTATION
     Dosage: 1 TABLET, QD
     Route: 048
  10. HYDROCHLOROTHIAZIDE [Concomitant]
     Indication: HYPERTENSION
     Dosage: 25 MG, QD
     Route: 048
  11. SINGULAIR [Concomitant]
     Indication: ASTHMA
     Dosage: 10 MG, QD
     Route: 048
  12. LORATADINE [Concomitant]
     Indication: HYPERSENSITIVITY
     Dosage: 10 MG, QD
     Route: 048
  13. ADVAIR DISKUS 100/50 [Concomitant]
     Indication: ASTHMA
     Dosage: 2 PUFF, BID
  14. ASMANEX TWISTHALER [Concomitant]
     Indication: ASTHMA
     Dosage: 2 PUFF, QD

REACTIONS (3)
  - PRE-ECLAMPSIA [None]
  - RESPIRATORY FAILURE [None]
  - DRUG EXPOSURE DURING PREGNANCY [None]
